FAERS Safety Report 9882324 (Version 2)
Quarter: 2014Q2

REPORT INFORMATION
  Report Type: Spontaneous
  Country: US (occurrence: US)
  Receive Date: 20140207
  Receipt Date: 20140403
  Transmission Date: 20141212
  Serious: Yes (Hospitalization)
  Sender: FDA-Public Use
  Company Number: US-GLAXOSMITHKLINE-A1059057A

PATIENT
  Age: 63 Year
  Sex: Female

DRUGS (5)
  1. ADVAIR [Suspect]
     Indication: CHRONIC OBSTRUCTIVE PULMONARY DISEASE
     Dosage: 1PUFF TWICE PER DAY
     Route: 055
     Dates: start: 20130601
  2. DUONEB [Concomitant]
  3. ATENOLOL [Concomitant]
  4. OXYGEN [Concomitant]
  5. ALBUTEROL INHALER [Concomitant]

REACTIONS (5)
  - Pneumonia [Unknown]
  - Dysphonia [Recovered/Resolved]
  - Dry throat [Recovered/Resolved]
  - Myalgia [Recovered/Resolved]
  - Arthralgia [Recovered/Resolved]
